FAERS Safety Report 13870779 (Version 2)
Quarter: 2018Q3

REPORT INFORMATION
  Report Type: Spontaneous
  Country: FR (occurrence: FR)
  Receive Date: 20170816
  Receipt Date: 20180731
  Transmission Date: 20181010
  Serious: Yes (Hospitalization)
  Sender: FDA-Public Use
  Company Number: PHHY2017FR118374

PATIENT
  Age: 6 Year
  Sex: Male

DRUGS (10)
  1. PARACETAMOL [Suspect]
     Active Substance: ACETAMINOPHEN
     Indication: PAIN
     Dosage: 300 MG, QID
     Route: 042
     Dates: start: 20170715, end: 20170725
  2. PROPOFOL LIPURO [Suspect]
     Active Substance: PROPOFOL
     Indication: ANAESTHESIA
     Dosage: 150 MG, ONCE/SINGLE
     Route: 042
     Dates: start: 20170722
  3. GENTAMICINE PANPHARMA [Suspect]
     Active Substance: GENTAMICIN
     Indication: GASTROINTESTINAL SURGERY
     Dosage: 1 DF, QD
     Route: 042
     Dates: start: 20170722
  4. ATARAX [Suspect]
     Active Substance: HYDROXYZINE HYDROCHLORIDE
     Indication: ANXIETY
     Dosage: UNK, ONCE/SINGLE
     Route: 048
     Dates: start: 20170721
  5. NEFOPAM [Suspect]
     Active Substance: NEFOPAM
     Indication: PAIN
     Dosage: 10 MG, ONCE/SINGLE
     Route: 042
     Dates: start: 20170722
  6. NALBUPHINE [Suspect]
     Active Substance: NALBUPHINE
     Indication: PAIN
     Dosage: 16 MG, QD (4 TO 6 INTRAVENOUS INFUSIONS DAILY FOR PAIN, DF, QD)
     Route: 042
     Dates: start: 20170722, end: 20170725
  7. AMOXICILLIN CLAVULANIC ACID SANDOZ [Suspect]
     Active Substance: AMOXICILLIN\CLAVULANIC ACID
     Indication: SOFT TISSUE INFECTION
     Dosage: 700 MG, TID
     Route: 042
     Dates: start: 20170722, end: 20170725
  8. ATRACURIUM HOSPIRA [Suspect]
     Active Substance: ATRACURIUM BESYLATE
     Indication: ANAESTHESIA
     Dosage: 10 MG, ONCE/SINGLE
     Route: 042
     Dates: start: 20170722
  9. ATARAX [Suspect]
     Active Substance: HYDROXYZINE HYDROCHLORIDE
     Indication: ANXIETY
  10. SUFENTANIL [Suspect]
     Active Substance: SUFENTANIL
     Indication: ANAESTHESIA
     Dosage: 8 UG, ONCE/SINGLE
     Route: 065
     Dates: start: 20170722

REACTIONS (1)
  - Rash maculo-papular [Recovered/Resolved]

NARRATIVE: CASE EVENT DATE: 20170724
